FAERS Safety Report 10789577 (Version 2)
Quarter: 2015Q2

REPORT INFORMATION
  Report Type: Spontaneous
  Country: US (occurrence: US)
  Receive Date: 20150212
  Receipt Date: 20150512
  Transmission Date: 20150821
  Serious: Yes (Other)
  Sender: FDA-Public Use
  Company Number: US-BAYER-2015-018363

PATIENT
  Age: 27 Year
  Sex: Female
  Weight: 86.17 kg

DRUGS (2)
  1. DIFLUCAN [Concomitant]
     Active Substance: FLUCONAZOLE
     Dosage: 150 MG, DISPENSED 2 TABS NO REFILLS
     Route: 048
     Dates: start: 20120125
  2. MIRENA [Suspect]
     Active Substance: LEVONORGESTREL
     Indication: CONTRACEPTION
     Dosage: 20 MCG/24HR, CONT
     Route: 015
     Dates: start: 20101015, end: 20130222

REACTIONS (13)
  - Emotional distress [None]
  - Dyspareunia [Not Recovered/Not Resolved]
  - Asthenia [None]
  - Depression [None]
  - Device difficult to use [None]
  - Complication of device removal [None]
  - Anxiety [None]
  - Injury [Not Recovered/Not Resolved]
  - Abdominal pain lower [Not Recovered/Not Resolved]
  - Device breakage [None]
  - Uterine perforation [Not Recovered/Not Resolved]
  - Pelvic pain [Not Recovered/Not Resolved]
  - Infertility female [Not Recovered/Not Resolved]

NARRATIVE: CASE EVENT DATE: 2010
